FAERS Safety Report 5375213-5 (Version None)
Quarter: 2007Q2

REPORT INFORMATION
  Report Type: 
  Country: None (occurrence: None)
  Receive Date: 20070629
  Receipt Date: 20070625
  Transmission Date: 20071010
  Serious: Yes (Hospitalization)
  Sender: FDA-Public Use
  Company Number: PHRM2007FR01735

PATIENT
  Age: 52 Year
  Sex: Female

DRUGS (6)
  1. TAXOTERE [Concomitant]
     Indication: BREAST CANCER METASTATIC
     Dates: start: 20030201, end: 20040101
  2. CARBOPLATIN [Concomitant]
     Indication: BREAST CANCER METASTATIC
     Dates: start: 20040527, end: 20040701
  3. CARBOPLATIN [Concomitant]
     Dosage: UNK, BIW
     Dates: start: 20060101, end: 20070601
  4. HERCEPTIN [Concomitant]
     Indication: BREAST CANCER METASTATIC
     Dates: start: 20031021, end: 20050810
  5. HERCEPTIN [Concomitant]
     Dosage: UNK, TIW
     Dates: start: 20051025, end: 20070601
  6. ZOMETA [Suspect]
     Indication: METASTASES TO BONE
     Dosage: 4 MG, TIW
     Route: 042
     Dates: start: 20031021, end: 20050406

REACTIONS (6)
  - GINGIVAL INFECTION [None]
  - OSTEITIS [None]
  - OSTEONECROSIS [None]
  - TOOTH EXTRACTION [None]
  - TOOTH INFECTION [None]
  - WOUND DEBRIDEMENT [None]
